FAERS Safety Report 24285779 (Version 2)
Quarter: 2024Q4

REPORT INFORMATION
  Report Type: Spontaneous
  Country: ES (occurrence: ES)
  Receive Date: 20240905
  Receipt Date: 20241021
  Transmission Date: 20250115
  Serious: Yes (Death, Hospitalization)
  Sender: TEVA
  Company Number: ES-TEVA-VS-3238710

PATIENT
  Age: 86 Year
  Sex: Male

DRUGS (4)
  1. LEUCOVORIN [Suspect]
     Active Substance: LEUCOVORIN\LEUCOVORIN CALCIUM
     Indication: Toxicity to various agents
     Route: 042
  2. FILGRASTIM [Suspect]
     Active Substance: FILGRASTIM
     Indication: Toxicity to various agents
     Route: 065
  3. PIPERACILLIN AND TAZOBACTAM [Suspect]
     Active Substance: PIPERACILLIN SODIUM\TAZOBACTAM SODIUM
     Indication: Eczema impetiginous
     Dosage: PIPERACILLIN 4G/TAZOBACTAM 500MG
     Route: 065
  4. METHOTREXATE [Suspect]
     Active Substance: METHOTREXATE
     Indication: Dermatitis atopic
     Dosage: TOOK DAILY TREATMENT FOR FIVE CONSECUTIVE DAYS INSTEAD OF WEEKLY
     Route: 048

REACTIONS (8)
  - Toxicity to various agents [Fatal]
  - Drug ineffective [Fatal]
  - Acute kidney injury [Unknown]
  - Multiple organ dysfunction syndrome [Fatal]
  - Accidental overdose [Fatal]
  - Pancytopenia [Fatal]
  - Inappropriate schedule of product administration [Fatal]
  - Eczema impetiginous [Unknown]
